FAERS Safety Report 6913562-7 (Version None)
Quarter: 2010Q3

REPORT INFORMATION
  Report Type: 
  Country: None (occurrence: None)
  Receive Date: 20100809
  Receipt Date: 20100730
  Transmission Date: 20110219
  Serious: Yes (Other)
  Sender: FDA-Public Use
  Company Number: GB-NAPPMUNDI-DEU-2010-0005970

PATIENT
  Sex: Male
  Weight: 46.3 kg

DRUGS (8)
  1. BTDS 20 MG [Suspect]
     Indication: ORAL PAIN
     Dosage: 20 MCG, Q1H
     Route: 062
     Dates: start: 20100226, end: 20100227
  2. PARACETAMOL [Concomitant]
  3. ONDANSETRON [Concomitant]
  4. PIPERACILLIN [Concomitant]
  5. AMIKACIN [Concomitant]
  6. POTASSIUM CHLORIDE [Concomitant]
  7. TEICOPLANIN [Concomitant]
  8. ORAMORPH SR [Concomitant]

REACTIONS (3)
  - DEPRESSED LEVEL OF CONSCIOUSNESS [None]
  - MIOSIS [None]
  - OXYGEN SATURATION DECREASED [None]
